FAERS Safety Report 6208494-6 (Version None)
Quarter: 2009Q2

REPORT INFORMATION
  Report Type: 
  Country: None (occurrence: None)
  Receive Date: 20090522
  Receipt Date: 20090216
  Transmission Date: 20091009
  Serious: No
  Sender: FDA-Public Use
  Company Number: 8043129

PATIENT
  Age: 32 Year
  Sex: Female
  Weight: 78 kg

DRUGS (7)
  1. CIMZIA [Suspect]
     Indication: CROHN'S DISEASE
     Dosage: 400 MG 1/2W SC
     Route: 058
     Dates: start: 20080821
  2. LIALDA [Concomitant]
  3. COLAZAL [Concomitant]
  4. PHENERGAN /01851401/ [Concomitant]
  5. KLONOPIN [Concomitant]
  6. PROZAC [Concomitant]
  7. LAMICTAL [Concomitant]

REACTIONS (7)
  - ABDOMINAL PAIN [None]
  - INJECTION SITE SWELLING [None]
  - INSOMNIA [None]
  - LYMPHADENOPATHY [None]
  - NAUSEA [None]
  - NEPHROLITHIASIS [None]
  - VOMITING [None]
